FAERS Safety Report 9300477 (Version 2)
Quarter: 2013Q2

REPORT INFORMATION
  Report Type: Report from Study
  Country: JP (occurrence: JP)
  Receive Date: 20130521
  Receipt Date: 20130625
  Transmission Date: 20140414
  Serious: Yes (Death, Hospitalization)
  Sender: FDA-Public Use
  Company Number: JP-ASTELLAS-2011JP009126

PATIENT
  Sex: Female
  Weight: 44.6 kg

DRUGS (14)
  1. TACROLIMUS CAPSULES [Suspect]
     Indication: LUPUS NEPHRITIS
     Dosage: 3 MG, UNKNOWN/D
     Route: 048
     Dates: start: 20080204, end: 20111101
  2. TACROLIMUS CAPSULES [Suspect]
     Dosage: 2 MG, UNKNOWN/D
     Route: 048
     Dates: start: 20080107, end: 20080204
  3. PREDNISOLONE [Suspect]
     Indication: LUPUS NEPHRITIS
     Dosage: 11 MG, UNKNOWN/D
     Route: 048
     Dates: end: 20110621
  4. PREDNISOLONE [Suspect]
     Dosage: 10 MG, UNKNOWN/D
     Route: 048
     Dates: start: 20110622
  5. PARIET [Concomitant]
     Indication: GASTRITIS
     Dosage: 10 MG, UNKNOWN/D
     Route: 048
  6. MUCOSTA [Concomitant]
     Dosage: 300 MG, UNKNOWN/D
     Route: 048
  7. SOLANAX [Concomitant]
     Dosage: 0.4 MG, PRN
     Route: 048
  8. SOLANAX [Concomitant]
     Dosage: 0.4 MG, UNKNOWN/D
     Route: 048
     Dates: end: 20081014
  9. DEPAS [Concomitant]
     Dosage: 1.5 MG, UNKNOWN/D
     Route: 048
     Dates: end: 20081014
  10. PRIMPERAN [Concomitant]
     Indication: GASTRITIS
     Dosage: 15 MG, UNKNOWN/D
     Route: 048
  11. LIPOVAS [Concomitant]
     Indication: HYPERLIPIDAEMIA
     Dosage: 10 MG, UNKNOWN/D
     Route: 048
  12. CHOLEBINE [Concomitant]
     Dosage: 3.62 G, UNKNOWN/D
     Route: 048
  13. CONSTAN [Concomitant]
     Indication: INSOMNIA
     Dosage: 0.8 MG, UNKNOWN/D
     Route: 048
     Dates: start: 20081015, end: 20090204
  14. CONSTAN [Concomitant]
     Indication: DEPRESSION
     Dosage: 1.2 MG, UNKNOWN/D
     Route: 048
     Dates: start: 20090204

REACTIONS (1)
  - Angioimmunoblastic T-cell lymphoma recurrent [Fatal]
